FAERS Safety Report 5502405-4 (Version None)
Quarter: 2007Q4

REPORT INFORMATION
  Report Type: 
  Country: None (occurrence: None)
  Receive Date: 20071030
  Receipt Date: 20071023
  Transmission Date: 20080405
  Serious: Yes (Other)
  Sender: FDA-Public Use
  Company Number: NO-PFIZER INC-2007089274

PATIENT
  Sex: Female

DRUGS (1)
  1. ZOLOFT [Suspect]
     Route: 048
     Dates: start: 19920101, end: 20040101

REACTIONS (2)
  - PARAESTHESIA [None]
  - RESTLESS LEGS SYNDROME [None]
